FAERS Safety Report 25860640 (Version 1)
Quarter: 2025Q3

REPORT INFORMATION
  Report Type: Spontaneous
  Country: EU (occurrence: EU)
  Receive Date: 20250929
  Receipt Date: 20250929
  Transmission Date: 20251020
  Serious: Yes (Hospitalization)
  Sender: MYLAN
  Company Number: None

PATIENT
  Age: 74 Year
  Sex: Female

DRUGS (40)
  1. TOBI PODHALER [Suspect]
     Active Substance: TOBRAMYCIN
     Indication: Pseudomonas infection
     Dosage: 112 MILLIGRAM, BID (28-DAY COURSE, THEN 28-DAY PAUSE AND REPEAT OF THE COURSE / FOUR CAPSULES
     Dates: start: 20250113, end: 20250628
  2. TOBI PODHALER [Suspect]
     Active Substance: TOBRAMYCIN
     Dosage: 112 MILLIGRAM, BID (28-DAY COURSE, THEN 28-DAY PAUSE AND REPEAT OF THE COURSE / FOUR CAPSULES
     Route: 055
     Dates: start: 20250113, end: 20250628
  3. TOBI PODHALER [Suspect]
     Active Substance: TOBRAMYCIN
     Dosage: 112 MILLIGRAM, BID (28-DAY COURSE, THEN 28-DAY PAUSE AND REPEAT OF THE COURSE / FOUR CAPSULES
     Route: 055
     Dates: start: 20250113, end: 20250628
  4. TOBI PODHALER [Suspect]
     Active Substance: TOBRAMYCIN
     Dosage: 112 MILLIGRAM, BID (28-DAY COURSE, THEN 28-DAY PAUSE AND REPEAT OF THE COURSE / FOUR CAPSULES
     Dates: start: 20250113, end: 20250628
  5. ATACAND [Concomitant]
     Active Substance: CANDESARTAN CILEXETIL
     Dosage: 32 MILLIGRAM, QD, (1 TABLET DAILY)
     Dates: start: 2015
  6. ATACAND [Concomitant]
     Active Substance: CANDESARTAN CILEXETIL
     Dosage: 32 MILLIGRAM, QD, (1 TABLET DAILY)
     Route: 048
     Dates: start: 2015
  7. ATACAND [Concomitant]
     Active Substance: CANDESARTAN CILEXETIL
     Dosage: 32 MILLIGRAM, QD, (1 TABLET DAILY)
     Route: 048
     Dates: start: 2015
  8. ATACAND [Concomitant]
     Active Substance: CANDESARTAN CILEXETIL
     Dosage: 32 MILLIGRAM, QD, (1 TABLET DAILY)
     Dates: start: 2015
  9. ATORVASTATIN [Concomitant]
     Active Substance: ATORVASTATIN
     Indication: Hypercholesterolaemia
     Dosage: 20 MILLIGRAM, QD, (1 TABLET DAILY)
     Dates: start: 202502
  10. ATORVASTATIN [Concomitant]
     Active Substance: ATORVASTATIN
     Dosage: 20 MILLIGRAM, QD, (1 TABLET DAILY)
     Route: 048
     Dates: start: 202502
  11. ATORVASTATIN [Concomitant]
     Active Substance: ATORVASTATIN
     Dosage: 20 MILLIGRAM, QD, (1 TABLET DAILY)
     Route: 048
     Dates: start: 202502
  12. ATORVASTATIN [Concomitant]
     Active Substance: ATORVASTATIN
     Dosage: 20 MILLIGRAM, QD, (1 TABLET DAILY)
     Dates: start: 202502
  13. METOPROLOL TARTRATE [Concomitant]
     Active Substance: METOPROLOL TARTRATE
     Indication: Hypertension
     Dosage: 47.5 MILLIGRAM, BID, (1 TABLET TWICE DAILY)
     Dates: start: 2015
  14. METOPROLOL TARTRATE [Concomitant]
     Active Substance: METOPROLOL TARTRATE
     Dosage: 47.5 MILLIGRAM, BID, (1 TABLET TWICE DAILY)
     Route: 048
     Dates: start: 2015
  15. METOPROLOL TARTRATE [Concomitant]
     Active Substance: METOPROLOL TARTRATE
     Dosage: 47.5 MILLIGRAM, BID, (1 TABLET TWICE DAILY)
     Route: 048
     Dates: start: 2015
  16. METOPROLOL TARTRATE [Concomitant]
     Active Substance: METOPROLOL TARTRATE
     Dosage: 47.5 MILLIGRAM, BID, (1 TABLET TWICE DAILY)
     Dates: start: 2015
  17. LERCANIDIPINE HYDROCHLORIDE [Concomitant]
     Active Substance: LERCANIDIPINE HYDROCHLORIDE
     Dosage: 10 MILLIGRAM, QD, (1 TABLET DAILY)
     Dates: start: 202412
  18. LERCANIDIPINE HYDROCHLORIDE [Concomitant]
     Active Substance: LERCANIDIPINE HYDROCHLORIDE
     Dosage: 10 MILLIGRAM, QD, (1 TABLET DAILY)
     Route: 048
     Dates: start: 202412
  19. LERCANIDIPINE HYDROCHLORIDE [Concomitant]
     Active Substance: LERCANIDIPINE HYDROCHLORIDE
     Dosage: 10 MILLIGRAM, QD, (1 TABLET DAILY)
     Route: 048
     Dates: start: 202412
  20. LERCANIDIPINE HYDROCHLORIDE [Concomitant]
     Active Substance: LERCANIDIPINE HYDROCHLORIDE
     Dosage: 10 MILLIGRAM, QD, (1 TABLET DAILY)
     Dates: start: 202412
  21. CALCIUM CARBONATE\CHOLECALCIFEROL [Concomitant]
     Active Substance: CALCIUM CARBONATE\CHOLECALCIFEROL
     Dosage: 2 DOSAGE FORM, QD (2 TABLETS DAILY)
     Dates: start: 202412
  22. CALCIUM CARBONATE\CHOLECALCIFEROL [Concomitant]
     Active Substance: CALCIUM CARBONATE\CHOLECALCIFEROL
     Dosage: 2 DOSAGE FORM, QD (2 TABLETS DAILY)
     Route: 048
     Dates: start: 202412
  23. CALCIUM CARBONATE\CHOLECALCIFEROL [Concomitant]
     Active Substance: CALCIUM CARBONATE\CHOLECALCIFEROL
     Dosage: 2 DOSAGE FORM, QD (2 TABLETS DAILY)
     Route: 048
     Dates: start: 202412
  24. CALCIUM CARBONATE\CHOLECALCIFEROL [Concomitant]
     Active Substance: CALCIUM CARBONATE\CHOLECALCIFEROL
     Dosage: 2 DOSAGE FORM, QD (2 TABLETS DAILY)
     Dates: start: 202412
  25. QUETIAPINE FUMARATE [Concomitant]
     Active Substance: QUETIAPINE FUMARATE
     Dosage: 25 MILLIGRAM, QD, (1 TABLET IN THE EVENING BEFORE BEDTIME)
     Dates: start: 202402
  26. QUETIAPINE FUMARATE [Concomitant]
     Active Substance: QUETIAPINE FUMARATE
     Dosage: 25 MILLIGRAM, QD, (1 TABLET IN THE EVENING BEFORE BEDTIME)
     Route: 048
     Dates: start: 202402
  27. QUETIAPINE FUMARATE [Concomitant]
     Active Substance: QUETIAPINE FUMARATE
     Dosage: 25 MILLIGRAM, QD, (1 TABLET IN THE EVENING BEFORE BEDTIME)
     Route: 048
     Dates: start: 202402
  28. QUETIAPINE FUMARATE [Concomitant]
     Active Substance: QUETIAPINE FUMARATE
     Dosage: 25 MILLIGRAM, QD, (1 TABLET IN THE EVENING BEFORE BEDTIME)
     Dates: start: 202402
  29. ALLOPURINOL [Concomitant]
     Active Substance: ALLOPURINOL
     Indication: Gout
     Dosage: 100 MILLIGRAM, QD, (1 TABLET DAILY.)
     Dates: start: 2021
  30. ALLOPURINOL [Concomitant]
     Active Substance: ALLOPURINOL
     Dosage: 100 MILLIGRAM, QD, (1 TABLET DAILY.)
     Route: 048
     Dates: start: 2021
  31. ALLOPURINOL [Concomitant]
     Active Substance: ALLOPURINOL
     Dosage: 100 MILLIGRAM, QD, (1 TABLET DAILY.)
     Route: 048
     Dates: start: 2021
  32. ALLOPURINOL [Concomitant]
     Active Substance: ALLOPURINOL
     Dosage: 100 MILLIGRAM, QD, (1 TABLET DAILY.)
     Dates: start: 2021
  33. TRELEGY ELLIPTA [Concomitant]
     Active Substance: FLUTICASONE FUROATE\UMECLIDINIUM BROMIDE\VILANTEROL TRIFENATATE
     Indication: Asthma
     Dosage: 1 DOSAGE FORM, QD (1 DOSE DAILY)
     Dates: start: 202111
  34. TRELEGY ELLIPTA [Concomitant]
     Active Substance: FLUTICASONE FUROATE\UMECLIDINIUM BROMIDE\VILANTEROL TRIFENATATE
     Dosage: 1 DOSAGE FORM, QD (1 DOSE DAILY)
     Route: 055
     Dates: start: 202111
  35. TRELEGY ELLIPTA [Concomitant]
     Active Substance: FLUTICASONE FUROATE\UMECLIDINIUM BROMIDE\VILANTEROL TRIFENATATE
     Dosage: 1 DOSAGE FORM, QD (1 DOSE DAILY)
     Route: 055
     Dates: start: 202111
  36. TRELEGY ELLIPTA [Concomitant]
     Active Substance: FLUTICASONE FUROATE\UMECLIDINIUM BROMIDE\VILANTEROL TRIFENATATE
     Dosage: 1 DOSAGE FORM, QD (1 DOSE DAILY)
     Dates: start: 202111
  37. MONTELUKAST SODIUM [Concomitant]
     Active Substance: MONTELUKAST SODIUM
     Indication: Asthma
     Dosage: 10 MILLIGRAM, QD, (1 TABLET DAILY)
     Dates: start: 202111
  38. MONTELUKAST SODIUM [Concomitant]
     Active Substance: MONTELUKAST SODIUM
     Dosage: 10 MILLIGRAM, QD, (1 TABLET DAILY)
     Route: 048
     Dates: start: 202111
  39. MONTELUKAST SODIUM [Concomitant]
     Active Substance: MONTELUKAST SODIUM
     Dosage: 10 MILLIGRAM, QD, (1 TABLET DAILY)
     Route: 048
     Dates: start: 202111
  40. MONTELUKAST SODIUM [Concomitant]
     Active Substance: MONTELUKAST SODIUM
     Dosage: 10 MILLIGRAM, QD, (1 TABLET DAILY)
     Dates: start: 202111

REACTIONS (2)
  - Acute kidney injury [Recovered/Resolved with Sequelae]
  - Hypoacusis [Recovered/Resolved with Sequelae]

NARRATIVE: CASE EVENT DATE: 20250601
